FAERS Safety Report 6610836-4 (Version None)
Quarter: 2010Q1

REPORT INFORMATION
  Report Type: 
  Country: None (occurrence: None)
  Receive Date: 20100219
  Receipt Date: 20100120
  Transmission Date: 20100710
  Serious: Yes (Life-Threatening)
  Sender: FDA-Public Use
  Company Number: 319942

PATIENT
  Age: 63 Year
  Sex: Female

DRUGS (2)
  1. (GENTAMICIN) [Suspect]
     Indication: ANTIBIOTIC PROPHYLAXIS
     Dosage: 80 MG/M2, INTRAVENOUS
     Route: 042
     Dates: start: 20090618, end: 20090618
  2. CEFTRIAXONE [Suspect]
     Indication: ANTIBIOTIC PROPHYLAXIS
     Dosage: 1 G, INTRAVENOUS
     Route: 042
     Dates: start: 20090616, end: 20090616

REACTIONS (2)
  - ANAPHYLACTIC SHOCK [None]
  - CARDIO-RESPIRATORY ARREST [None]
